FAERS Safety Report 10207580 (Version 1)
Quarter: 2014Q2

REPORT INFORMATION
  Report Type: Spontaneous
  Country: US (occurrence: None)
  Receive Date: 20140527
  Receipt Date: 20140527
  Transmission Date: 20141212
  Serious: No
  Sender: FDA-Public Use
  Company Number: None

PATIENT
  Age: 55 Year
  Sex: Female

DRUGS (1)
  1. SULFAMETHOXAZOLE/TRIMETHOPRIM [Suspect]
     Indication: STAPHYLOCOCCAL INFECTION
     Dates: start: 201201, end: 201201

REACTIONS (18)
  - Drug-induced liver injury [None]
  - Stevens-Johnson syndrome [None]
  - Rash [None]
  - Diarrhoea [None]
  - Leukocytosis [None]
  - Eosinophilia [None]
  - Pruritus [None]
  - Oedema [None]
  - Abdominal pain [None]
  - Dysuria [None]
  - Somnolence [None]
  - Confusional state [None]
  - Splenic infarction [None]
  - Hypoproteinaemia [None]
  - Dyspnoea [None]
  - Decreased appetite [None]
  - Sepsis [None]
  - Hepatic steatosis [None]
